FAERS Safety Report 9833058 (Version 1)
Quarter: 2014Q1

REPORT INFORMATION
  Report Type: Spontaneous
  Country: US (occurrence: US)
  Receive Date: 20140121
  Receipt Date: 20140121
  Transmission Date: 20141002
  Serious: Yes (Other)
  Sender: FDA-Public Use
  Company Number: CHPA2014US000786

PATIENT
  Age: 73 Year
  Sex: Female

DRUGS (3)
  1. VOLTAREN GEL [Suspect]
     Indication: OSTEOARTHRITIS
     Route: 061
  2. ALEVE [Suspect]
     Route: 065
  3. SIMVASTATIN [Concomitant]
     Route: 065

REACTIONS (3)
  - Cardiac flutter [Not Recovered/Not Resolved]
  - Vision blurred [Unknown]
  - Intentional drug misuse [Unknown]
